FAERS Safety Report 19053602 (Version 1)
Quarter: 2021Q1

REPORT INFORMATION
  Report Type: Spontaneous
  Country: FR (occurrence: FR)
  Receive Date: 20210325
  Receipt Date: 20210325
  Transmission Date: 20210420
  Serious: Yes (Hospitalization)
  Sender: FDA-Public Use
  Company Number: FR-SUN PHARMACEUTICAL INDUSTRIES LTD-2021RR-287562

PATIENT
  Age: 91 Year
  Sex: Female

DRUGS (5)
  1. CEFTRIAXONE MYLAN 1 G, POUDRE POUR SOLUTION INJECTABLE [Suspect]
     Active Substance: CEFTRIAXONE
     Indication: KLEBSIELLA INFECTION
     Dosage: 1 DOSAGE FORM, DAILY
     Route: 042
     Dates: start: 20200926, end: 20201002
  2. OXYNORM 10 MG/ML, SOLUTION BUVABLE [Suspect]
     Active Substance: OXYCODONE HYDROCHLORIDE
     Indication: PAIN
     Dosage: UNK
     Route: 048
     Dates: start: 20200929, end: 20201004
  3. VENLAFAXINE [Suspect]
     Active Substance: VENLAFAXINE HYDROCHLORIDE
     Indication: MIXED ANXIETY AND DEPRESSIVE DISORDER
     Dosage: UNK
     Route: 048
  4. OXYCODONE MYLAN LP 5 MG, COMPRIME PELLICULE A LIBERATION PROLONGEE [Suspect]
     Active Substance: OXYCODONE
     Indication: PAIN
     Dosage: 1 DOSAGE FORM, DAILY
     Route: 048
     Dates: start: 20201002, end: 20201004
  5. NEO?MERCAZOLE 5 MG, COMPRIME [Suspect]
     Active Substance: CARBIMAZOLE
     Indication: HYPERTHYROIDISM
     Dosage: 2 DOSAGE FORM, DAILY
     Route: 048
     Dates: start: 20201002, end: 20201005

REACTIONS (2)
  - Myoclonus [Recovered/Resolved]
  - Encephalopathy [Recovered/Resolved]

NARRATIVE: CASE EVENT DATE: 20201004
